FAERS Safety Report 8321107-2 (Version None)
Quarter: 2012Q2

REPORT INFORMATION
  Report Type: 
  Country: None (occurrence: None)
  Receive Date: 20120430
  Receipt Date: 20120419
  Transmission Date: 20120825
  Serious: Yes (Other)
  Sender: FDA-Public Use
  Company Number: US-JNJFOC-20120410206

PATIENT
  Age: 45 Year
  Sex: Female

DRUGS (4)
  1. SERTRALINE HYDROCHLORIDE [Concomitant]
     Route: 048
  2. CONCERTA [Suspect]
     Indication: ATTENTION DEFICIT/HYPERACTIVITY DISORDER
     Route: 048
  3. VYVANSE [Suspect]
     Indication: PRODUCT USED FOR UNKNOWN INDICATION
     Route: 065
     Dates: end: 20120401
  4. SERTRALINE HYDROCHLORIDE [Concomitant]
     Indication: ANTIDEPRESSANT THERAPY
     Route: 048
     Dates: end: 20120416

REACTIONS (6)
  - CONFUSIONAL STATE [None]
  - NERVOUSNESS [None]
  - MEMORY IMPAIRMENT [None]
  - INSOMNIA [None]
  - NIGHTMARE [None]
  - THINKING ABNORMAL [None]
